FAERS Safety Report 16134412 (Version 1)
Quarter: 2019Q1

REPORT INFORMATION
  Report Type: Spontaneous
  Country: US (occurrence: US)
  Receive Date: 20190329
  Receipt Date: 20190329
  Transmission Date: 20190418
  Serious: No
  Sender: FDA-Public Use
  Company Number: US-BAYER-2019-059375

PATIENT
  Age: 85 Year
  Sex: Male
  Weight: 91 kg

DRUGS (1)
  1. MIRALAX [Suspect]
     Active Substance: POLYETHYLENE GLYCOL 3350
     Dosage: UNK(17 G DAILY IN A 4-8 OZ  BEVERAGE DOSE)
     Route: 048
     Dates: start: 20190317

REACTIONS (2)
  - Therapeutic response unexpected [None]
  - Diarrhoea [None]
